FAERS Safety Report 21365874 (Version 1)
Quarter: 2022Q3

REPORT INFORMATION
  Report Type: Report from Study
  Country: US (occurrence: None)
  Receive Date: 20220922
  Receipt Date: 20220922
  Transmission Date: 20221027
  Serious: Yes (Hospitalization, Other)
  Sender: FDA-Public Use
  Company Number: US-Merck Healthcare KGaA-9351946

PATIENT
  Age: 73 Year
  Sex: Female

DRUGS (6)
  1. MAVENCLAD [Suspect]
     Active Substance: CLADRIBINE
     Indication: Multiple sclerosis
     Dosage: YEAR ONE MONTH ONE THERAPY
     Route: 048
     Dates: start: 20210729
  2. MAVENCLAD [Suspect]
     Active Substance: CLADRIBINE
     Dosage: YEAR ONE MONTH TWO THERAPY
     Route: 048
     Dates: end: 20210902
  3. COVID-19 VACCINE [Concomitant]
     Indication: COVID-19 immunisation
     Dosage: DOSE 1
  4. COVID-19 VACCINE [Concomitant]
     Dosage: DOSE 2
  5. COVID-19 VACCINE [Concomitant]
     Dosage: DOSE 3
  6. COVID-19 VACCINE [Concomitant]
     Dosage: DOSE 4

REACTIONS (4)
  - Medical device change [Unknown]
  - Fall [Unknown]
  - Lower limb fracture [Unknown]
  - Multiple sclerosis [Unknown]

NARRATIVE: CASE EVENT DATE: 20220701
